FAERS Safety Report 9571907 (Version 1)
Quarter: 2013Q4

REPORT INFORMATION
  Report Type: Spontaneous
  Country: FR (occurrence: FR)
  Receive Date: 20131001
  Receipt Date: 20131001
  Transmission Date: 20140711
  Serious: Yes (Life-Threatening)
  Sender: FDA-Public Use
  Company Number: FR-ASTRAZENECA-2013SE72139

PATIENT
  Age: 22558 Day
  Sex: Male

DRUGS (3)
  1. DIPRIVAN [Suspect]
     Route: 042
     Dates: start: 20130917, end: 20130917
  2. CELOCURINE [Suspect]
     Indication: ANAESTHESIA
     Route: 042
     Dates: start: 20130917, end: 20130917
  3. SUFENTA [Suspect]
     Indication: ANAESTHESIA
     Dosage: SINGLE ADMINISTRATION
     Route: 042
     Dates: start: 20130917, end: 20130917

REACTIONS (3)
  - Hypocapnia [Recovered/Resolved]
  - Circulatory collapse [Recovered/Resolved]
  - Rash [Recovered/Resolved]
